FAERS Safety Report 4506454-4 (Version None)
Quarter: 2004Q4

REPORT INFORMATION
  Report Type: 
  Country: None (occurrence: None)
  Receive Date: 20041122
  Receipt Date: 20041110
  Transmission Date: 20050328
  Serious: Yes (Hospitalization, Other)
  Sender: FDA-Public Use
  Company Number: ES-JNJFOC-20041006899

PATIENT
  Age: 46 Year
  Sex: Male

DRUGS (1)
  1. INFLIXIMAB [Suspect]
     Route: 042

REACTIONS (5)
  - COUGH [None]
  - DIARRHOEA HAEMORRHAGIC [None]
  - LUNG CONSOLIDATION [None]
  - PYREXIA [None]
  - THERAPY NON-RESPONDER [None]
